FAERS Safety Report 11024965 (Version 1)
Quarter: 2015Q2

REPORT INFORMATION
  Report Type: Spontaneous
  Country: US (occurrence: None)
  Receive Date: 20150413
  Receipt Date: 20150413
  Transmission Date: 20150821
  Serious: Yes (Hospitalization)
  Sender: FDA-Public Use
  Company Number: None

PATIENT
  Age: 83 Year
  Sex: Male
  Weight: 91 kg

DRUGS (8)
  1. LISINOPRIL (PRINIVIL, ZESTRIL) [Concomitant]
  2. ALLOPURINOL (ZYLOPRIM) [Concomitant]
  3. BISOPROLOL-HYDROCHLOROTHIAZIDE (ZIAC) [Concomitant]
  4. AMLODIPINE (NORVASC) [Concomitant]
  5. ALLOPURINOL (ZYLOPRIM) [Concomitant]
  6. ASPIRIN 81 MG [Suspect]
     Active Substance: ASPIRIN
     Indication: ATRIAL FIBRILLATION
  7. DAILY MULTIPLE VITAMINS TABS [Concomitant]
  8. WARFARIN 5 MG [Suspect]
     Active Substance: WARFARIN
     Indication: ATRIAL FIBRILLATION
     Dosage: 1-1.5 TABS
     Route: 048

REACTIONS (7)
  - International normalised ratio increased [None]
  - Diarrhoea [None]
  - Rectal haemorrhage [None]
  - Fall [None]
  - Hyperhidrosis [None]
  - Haemoglobin decreased [None]
  - Balance disorder [None]

NARRATIVE: CASE EVENT DATE: 20150205
